FAERS Safety Report 8614629-8 (Version None)
Quarter: 2012Q3

REPORT INFORMATION
  Report Type: 
  Country: None (occurrence: None)
  Receive Date: 20120809
  Receipt Date: 20120730
  Transmission Date: 20120928
  Serious: Yes (Other)
  Sender: FDA-Public Use
  Company Number: PHHY2012IT067355

PATIENT
  Age: 72 Year
  Sex: Female

DRUGS (3)
  1. VISUDYNE [Suspect]
     Indication: POLYPOIDAL CHOROIDAL VASCULOPATHY
  2. POVIDONE-IODINE (FORMULA 47) [Concomitant]
  3. LUCENTIS [Suspect]
     Indication: POLYPOIDAL CHOROIDAL VASCULOPATHY
     Dosage: 0.5 MG DAILY ET

REACTIONS (3)
  - SUBRETINAL FIBROSIS [None]
  - POLYP [None]
  - DRUG INEFFECTIVE [None]
